FAERS Safety Report 8936810 (Version 1)
Quarter: 2012Q4

REPORT INFORMATION
  Report Type: Report from Study
  Country: CA (occurrence: CA)
  Receive Date: 20121130
  Receipt Date: 20121130
  Transmission Date: 20130627
  Serious: Yes (Other)
  Sender: FDA-Public Use
  Company Number: CA-ROCHE-1162290

PATIENT
  Age: 44 Year
  Sex: Male

DRUGS (5)
  1. PEG-INTERFERON ALFA 2A [Suspect]
     Indication: HEPATITIS C
     Route: 058
     Dates: start: 20121101
  2. RIBAVIRIN [Suspect]
     Indication: HEPATITIS C
     Route: 065
     Dates: start: 20121101
  3. DOXEPIN [Concomitant]
  4. DOCUSATE [Concomitant]
  5. METHADONE [Concomitant]

REACTIONS (3)
  - Mental disorder [Unknown]
  - Dyspnoea [Not Recovered/Not Resolved]
  - Haemoglobin decreased [Not Recovered/Not Resolved]
